FAERS Safety Report 14034766 (Version 5)
Quarter: 2018Q1

REPORT INFORMATION
  Report Type: Report from Study
  Country: BR (occurrence: BR)
  Receive Date: 20171003
  Receipt Date: 20180312
  Transmission Date: 20180508
  Serious: Yes (Hospitalization, Other)
  Sender: FDA-Public Use
  Company Number: BR-ALEXION-A201707481

PATIENT
  Age: 63 Year
  Sex: Female

DRUGS (2)
  1. SOLIRIS [Suspect]
     Active Substance: ECULIZUMAB
     Indication: PAROXYSMAL NOCTURNAL HAEMOGLOBINURIA
     Dosage: 600 MG, QW
     Route: 042
     Dates: start: 20130418, end: 20130509
  2. SOLIRIS [Suspect]
     Active Substance: ECULIZUMAB
     Dosage: 900 MG, Q2W
     Route: 042
     Dates: start: 20130516, end: 20170808

REACTIONS (13)
  - Pain in extremity [Not Recovered/Not Resolved]
  - Pallor [Not Recovered/Not Resolved]
  - Abdominal distension [Unknown]
  - Depressed mood [Not Recovered/Not Resolved]
  - Chromaturia [Not Recovered/Not Resolved]
  - Pain [Unknown]
  - Influenza [Unknown]
  - Thrombosis mesenteric vessel [Unknown]
  - Abdominal pain [Not Recovered/Not Resolved]
  - Skin lesion [Recovered/Resolved]
  - Oropharyngeal pain [Unknown]
  - Cough [Not Recovered/Not Resolved]
  - Fatigue [Unknown]

NARRATIVE: CASE EVENT DATE: 20170915
